FAERS Safety Report 9733238 (Version 1)
Quarter: 2013Q4

REPORT INFORMATION
  Report Type: Spontaneous
  Country: US (occurrence: None)
  Receive Date: 20131204
  Receipt Date: 20131204
  Transmission Date: 20140711
  Serious: Yes (Life-Threatening)
  Sender: FDA-Public Use
  Company Number: None

PATIENT
  Age: 68 Year
  Sex: Female
  Weight: 80 kg

DRUGS (1)
  1. PACLITAXEL [Suspect]
     Indication: NON-SMALL CELL LUNG CANCER
     Dosage: Q WEEKLY X 6 WKS ; INTRAVENOUS PIGGY BACK
     Dates: start: 20131022

REACTIONS (4)
  - Dyskinesia [None]
  - Unresponsive to stimuli [None]
  - Dyspnoea [None]
  - Wheezing [None]
